FAERS Safety Report 12952854 (Version 5)
Quarter: 2018Q4

REPORT INFORMATION
  Report Type: Spontaneous
  Country: US (occurrence: US)
  Receive Date: 20161117
  Receipt Date: 20181031
  Transmission Date: 20190204
  Serious: Yes (Hospitalization, Other)
  Sender: FDA-Public Use
  Company Number: US-PFIZER INC-2016527971

PATIENT
  Age: 64 Year
  Sex: Male

DRUGS (12)
  1. COLISTIN [Concomitant]
     Active Substance: COLISTIN
     Indication: FEBRILE NEUTROPENIA
     Dosage: 300 MG, UNK (HOSPITAL DAY 1)
     Route: 042
  2. LINEZOLID. [Concomitant]
     Active Substance: LINEZOLID
     Indication: PSEUDOMONAS INFECTION
     Dosage: 600 MG, UNK (600 MG IVX1)
     Route: 042
  3. COLISTIN [Concomitant]
     Active Substance: COLISTIN
     Dosage: 200 MG, 2X/DAY(HOSPITAL DAY 4 TO 16)
     Route: 042
  4. ALEMTUZUMAB [Concomitant]
     Active Substance: ALEMTUZUMAB
     Indication: CHRONIC LYMPHOCYTIC LEUKAEMIA
     Dosage: UNK
  5. SULFAMETHOXAZOLE AND TRIMETHOPRIM [Concomitant]
     Active Substance: SULFAMETHOXAZOLE\TRIMETHOPRIM
     Indication: PROPHYLAXIS
     Dosage: UNK
     Route: 048
  6. CEFTAZIDIME. [Suspect]
     Active Substance: CEFTAZIDIME
     Indication: FEBRILE NEUTROPENIA
     Dosage: 2 G, UNK (2 G IVX1) (HOSPITAL DAY 1)
     Route: 042
  7. CEFTAZIDIME. [Suspect]
     Active Substance: CEFTAZIDIME
     Indication: PSEUDOMONAS INFECTION
     Dosage: 16 G, DAILY (HOSPITAL DAY 4,5,6,7)
     Route: 041
  8. CEFTAZIDIME. [Suspect]
     Active Substance: CEFTAZIDIME
     Dosage: 19.2 G, DAILY (HOSPITAL DAY 8,9,10,11)
     Route: 041
  9. RITUXIMAB. [Concomitant]
     Active Substance: RITUXIMAB
     Indication: CHRONIC LYMPHOCYTIC LEUKAEMIA
     Dosage: UNK
  10. COLISTIN [Concomitant]
     Active Substance: COLISTIN
     Indication: PSEUDOMONAS INFECTION
     Dosage: 120 MG, 3X/DAY(HOSPITAL DAY 2 AND 3 )
     Route: 042
  11. CEFPODOXIME [Concomitant]
     Active Substance: CEFPODOXIME
     Indication: PROPHYLAXIS
     Dosage: UNK
  12. CEFTAZIDIME. [Suspect]
     Active Substance: CEFTAZIDIME
     Indication: FEBRILE NEUTROPENIA
     Dosage: 8 G, DAILY (HOSPITAL DAY 2,3)
     Route: 041

REACTIONS (4)
  - Drug resistance [Unknown]
  - Overdose [Unknown]
  - Epilepsy [Recovered/Resolved]
  - Neurotoxicity [Recovering/Resolving]
